FAERS Safety Report 22185092 (Version 1)
Quarter: 2023Q2

REPORT INFORMATION
  Report Type: Report from Study
  Country: GB (occurrence: GB)
  Receive Date: 20230407
  Receipt Date: 20230407
  Transmission Date: 20230722
  Serious: Yes (Hospitalization, Other)
  Sender: FDA-Public Use
  Company Number: GB-ABBVIE-4719717

PATIENT
  Age: 66 Year
  Sex: Female

DRUGS (1)
  1. HUMIRA [Suspect]
     Active Substance: ADALIMUMAB
     Indication: Rheumatoid arthritis
     Dosage: 40MG
     Route: 058

REACTIONS (4)
  - Medical procedure [Unknown]
  - Dysstasia [Unknown]
  - Dizziness [Unknown]
  - Illness [Unknown]

NARRATIVE: CASE EVENT DATE: 20230101
